FAERS Safety Report 21563275 (Version 1)
Quarter: 2022Q4

REPORT INFORMATION
  Report Type: Spontaneous
  Country: US (occurrence: US)
  Receive Date: 20221107
  Receipt Date: 20221107
  Transmission Date: 20230112
  Serious: Yes (Other)
  Sender: FDA-Public Use
  Company Number: US-NOVEN PHARMACEUTICALS, INC.-2022-NOV-US001043

PATIENT
  Age: 7 Year
  Sex: Male

DRUGS (1)
  1. DAYTRANA [Suspect]
     Active Substance: METHYLPHENIDATE
     Indication: Attention deficit hyperactivity disorder
     Dosage: 15 MILLIGRAM / 9 HOURS, UNK
     Route: 062
     Dates: start: 20220307

REACTIONS (9)
  - Product adhesion issue [Not Recovered/Not Resolved]
  - Device issue [Not Recovered/Not Resolved]
  - Device difficult to use [Not Recovered/Not Resolved]
  - Irritability [Not Recovered/Not Resolved]
  - Application site pruritus [Not Recovered/Not Resolved]
  - Application site discomfort [Not Recovered/Not Resolved]
  - Application site erythema [Not Recovered/Not Resolved]
  - Exposure via direct contact [Not Recovered/Not Resolved]
  - Intentional removal of drug delivery system by patient [Not Recovered/Not Resolved]

NARRATIVE: CASE EVENT DATE: 20220307
